FAERS Safety Report 10700066 (Version 1)
Quarter: 2015Q1

REPORT INFORMATION
  Report Type: Spontaneous
  Country: TR (occurrence: TR)
  Receive Date: 20150109
  Receipt Date: 20150109
  Transmission Date: 20150721
  Serious: Yes (Hospitalization)
  Sender: FDA-Public Use
  Company Number: PHHY2015TR000446

PATIENT
  Age: 67 Year
  Sex: Male

DRUGS (3)
  1. GLICLAZIDE [Concomitant]
     Active Substance: GLICLAZIDE
     Indication: TYPE 2 DIABETES MELLITUS
     Dosage: 30 MG, QD
     Route: 048
  2. METFORMIN [Concomitant]
     Active Substance: METFORMIN HYDROCHLORIDE
     Indication: TYPE 2 DIABETES MELLITUS
     Dosage: 2000 MG, QD
     Route: 048
  3. QUETIAPINE [Suspect]
     Active Substance: QUETIAPINE
     Indication: DEPRESSION
     Dosage: 200 MG, QD
     Route: 065

REACTIONS (12)
  - Dehydration [Recovering/Resolving]
  - Confusional state [Recovering/Resolving]
  - Somnolence [Recovering/Resolving]
  - Tongue dry [Recovering/Resolving]
  - Hypernatraemia [Recovering/Resolving]
  - Atrioventricular block first degree [Recovering/Resolving]
  - Hyperosmolar hyperglycaemic state [Recovering/Resolving]
  - Acute kidney injury [Recovering/Resolving]
  - Hypophagia [Recovering/Resolving]
  - Mucosal dryness [Recovering/Resolving]
  - Diabetes mellitus [Recovering/Resolving]
  - Sinus tachycardia [Recovering/Resolving]
